FAERS Safety Report 4519637-4 (Version None)
Quarter: 2004Q4

REPORT INFORMATION
  Report Type: 
  Country: None (occurrence: None)
  Receive Date: 20041203
  Receipt Date: 20041119
  Transmission Date: 20050328
  Serious: Yes (Other)
  Sender: FDA-Public Use
  Company Number: 003596

PATIENT
  Age: 88 Year
  Sex: Female
  Weight: 68 kg

DRUGS (3)
  1. WARFARIN SODIUM [Suspect]
  2. WARFARIN SODIUM [Suspect]
  3. WARFARIN SODIUM [Suspect]

REACTIONS (4)
  - CEREBROVASCULAR ACCIDENT [None]
  - DRUG INEFFECTIVE [None]
  - INTERNATIONAL NORMALISED RATIO DECREASED [None]
  - PHARMACEUTICAL PRODUCT COMPLAINT [None]
